FAERS Safety Report 13398267 (Version 1)
Quarter: 2017Q2

REPORT INFORMATION
  Report Type: Spontaneous
  Country: PK (occurrence: PK)
  Receive Date: 20170403
  Receipt Date: 20170403
  Transmission Date: 20170830
  Serious: Yes (Hospitalization)
  Sender: FDA-Public Use
  Company Number: PK-SA-2017SA053015

PATIENT
  Age: 45 Year
  Sex: Male

DRUGS (2)
  1. LANTUS SOLOSTAR [Suspect]
     Active Substance: INSULIN GLARGINE
     Indication: HYPERGLYCAEMIA
     Dosage: DOSE:16 UNIT(S)
     Route: 058
     Dates: start: 2013, end: 20170324
  2. SOLOSTAR [Concomitant]
     Active Substance: DEVICE
     Indication: HYPERGLYCAEMIA
     Dates: start: 2013, end: 20170324

REACTIONS (2)
  - Cardiac arrest [Unknown]
  - Hyperglycaemia [Unknown]

NARRATIVE: CASE EVENT DATE: 2017
